FAERS Safety Report 25801717 (Version 1)
Quarter: 2025Q3

REPORT INFORMATION
  Report Type: Spontaneous
  Country: US (occurrence: US)
  Receive Date: 20250915
  Receipt Date: 20250915
  Transmission Date: 20251021
  Serious: No
  Sender: ROCHE
  Company Number: US-ROCHE-10000379563

PATIENT

DRUGS (1)
  1. OCREVUS ZUNOVO [Suspect]
     Active Substance: HYALURONIDASE-OCSQ\OCRELIZUMAB
     Indication: Product used for unknown indication
     Route: 050

REACTIONS (4)
  - Nasal congestion [Unknown]
  - Paranasal sinus hypersecretion [Unknown]
  - Eyelid margin crusting [Unknown]
  - Ocular hyperaemia [Unknown]
